FAERS Safety Report 4716394-3 (Version None)
Quarter: 2005Q3

REPORT INFORMATION
  Report Type: 
  Country: None (occurrence: None)
  Receive Date: 20050713
  Receipt Date: 20050629
  Transmission Date: 20060218
  Serious: Yes (Hospitalization)
  Sender: FDA-Public Use
  Company Number: 2005095546

PATIENT
  Age: 78 Year
  Sex: Male

DRUGS (3)
  1. NORVASC [Suspect]
     Indication: HYPERTENSION
     Dosage: 5 MG (5 MG,), ORAL
     Route: 048
  2. PACERONE [Suspect]
     Indication: HEART RATE INCREASED
     Dosage: 400 MG (400 MG, 1 IN 1 D), ORAL
     Route: 048
     Dates: start: 20050404
  3. FUROSEMIDE [Concomitant]

REACTIONS (5)
  - BLOOD PRESSURE SYSTOLIC INCREASED [None]
  - DRUG EFFECT DECREASED [None]
  - HEART RATE INCREASED [None]
  - JAUNDICE [None]
  - PHARMACEUTICAL PRODUCT COMPLAINT [None]
